FAERS Safety Report 6564504-8 (Version None)
Quarter: 2010Q1

REPORT INFORMATION
  Report Type: 
  Country: None (occurrence: None)
  Receive Date: 20100201
  Receipt Date: 20100120
  Transmission Date: 20100710
  Serious: Yes (Other)
  Sender: FDA-Public Use
  Company Number: US-ELI_LILLY_AND_COMPANY-US201001004845

PATIENT
  Sex: Female

DRUGS (3)
  1. FORTEO [Suspect]
     Indication: OSTEOPOROSIS
     Dosage: 20 UG, DAILY (1/D)
     Dates: start: 20090801
  2. ESTROGEN NOS [Concomitant]
  3. RESTASIS [Concomitant]
     Dosage: UNK, AS NEEDED

REACTIONS (5)
  - APHASIA [None]
  - FEELING ABNORMAL [None]
  - PAIN [None]
  - SINUSITIS [None]
  - TRANSIENT ISCHAEMIC ATTACK [None]
